FAERS Safety Report 8218907-6 (Version None)
Quarter: 2012Q1

REPORT INFORMATION
  Report Type: 
  Country: None (occurrence: None)
  Receive Date: 20120319
  Receipt Date: 20120316
  Transmission Date: 20120608
  Serious: Yes (Death, Other)
  Sender: FDA-Public Use
  Company Number: PHFR2011GB05492

PATIENT
  Sex: Male
  Weight: 86.9 kg

DRUGS (1)
  1. CLOZARIL [Suspect]
     Indication: SCHIZOPHRENIA
     Dosage: 900 MG/DAY
     Route: 048
     Dates: start: 20020527

REACTIONS (5)
  - ARTERIOSCLEROSIS CORONARY ARTERY [None]
  - CHEST PAIN [None]
  - MYOCARDIAL ISCHAEMIA [None]
  - ARTERIOSCLEROSIS [None]
  - ARTERIAL OCCLUSIVE DISEASE [None]
